FAERS Safety Report 8118477-7 (Version None)
Quarter: 2012Q1

REPORT INFORMATION
  Report Type: 
  Country: None (occurrence: None)
  Receive Date: 20120207
  Receipt Date: 20120126
  Transmission Date: 20120608
  Serious: Yes (Other)
  Sender: FDA-Public Use
  Company Number: CA-JNJFOC-20110510334

PATIENT
  Sex: Female
  Weight: 156.8 kg

DRUGS (19)
  1. FLOVENT [Concomitant]
     Indication: ASTHMA
     Route: 055
  2. FOLIC ACID [Concomitant]
     Indication: PRODUCT USED FOR UNKNOWN INDICATION
  3. REMICADE [Suspect]
     Dosage: INFUSION 43
     Route: 042
     Dates: start: 20120126
  4. HYDROCHLOROTHIAZIDE [Concomitant]
     Indication: HYPERTENSION
     Route: 048
  5. MORPHINE [Concomitant]
     Indication: PAIN
     Route: 065
  6. MAXIDEX (EYE DROPS) [Concomitant]
     Indication: EYE OPERATION
     Route: 047
  7. REMICADE [Suspect]
     Dosage: INFUSION 36
     Route: 042
     Dates: start: 20110415
  8. VITAMIN D [Concomitant]
     Indication: PRODUCT USED FOR UNKNOWN INDICATION
  9. ALL OTHER THERAPEUTIC DRUGS [Concomitant]
     Route: 065
  10. REMICADE [Suspect]
     Indication: RHEUMATOID ARTHRITIS
     Route: 042
     Dates: start: 20070507
  11. REMICADE [Suspect]
     Route: 042
     Dates: start: 20110519
  12. VITAMIN B-12 [Concomitant]
     Indication: PRODUCT USED FOR UNKNOWN INDICATION
  13. TRAMADOL HYDROCHLORIDE/ACETAMINOPHEN [Concomitant]
     Indication: PAIN
     Route: 065
  14. ARAVA [Concomitant]
     Indication: RHEUMATOID ARTHRITIS
     Route: 048
  15. ATROVENT [Concomitant]
     Indication: ASTHMA
     Route: 055
  16. PLAQUENIL [Suspect]
     Indication: PRODUCT USED FOR UNKNOWN INDICATION
     Dates: end: 20110201
  17. TRANDOLAPRIL [Concomitant]
     Indication: PRODUCT USED FOR UNKNOWN INDICATION
     Route: 048
  18. REACTINE [Concomitant]
     Indication: PRODUCT USED FOR UNKNOWN INDICATION
  19. CALCIUM [Concomitant]
     Indication: PRODUCT USED FOR UNKNOWN INDICATION

REACTIONS (6)
  - WHEEZING [None]
  - CATARACT [None]
  - BLOOD PRESSURE INCREASED [None]
  - NEUROPATHY PERIPHERAL [None]
  - DYSPNOEA [None]
  - CATARACT OPERATION [None]
